FAERS Safety Report 4873464-7 (Version None)
Quarter: 2005Q4

REPORT INFORMATION
  Report Type: 
  Country: None (occurrence: None)
  Receive Date: 20051201
  Receipt Date: 20050822
  Transmission Date: 20060501
  Serious: No
  Sender: FDA-Public Use
  Company Number: 2005PV001375

PATIENT
  Age: 76 Year
  Sex: Female

DRUGS (13)
  1. BYETTA [Suspect]
     Indication: DIABETES MELLITUS NON-INSULIN-DEPENDENT
     Dosage: 10 MCG;BID;SC
     Route: 058
     Dates: start: 20050101
  2. AMARYL [Concomitant]
  3. ASPIRIN [Concomitant]
  4. COREG [Concomitant]
  5. GLUCOPHAGE [Concomitant]
  6. LEVOXYL [Concomitant]
  7. LISINOPRIL W/ HYDROCHLOROTHIAZIDE [Concomitant]
  8. PLAVIX [Concomitant]
  9. PLETAL [Concomitant]
  10. LIPITOR [Concomitant]
  11. ZOLOFT [Concomitant]
  12. CENTRUM SILVER [Concomitant]
  13. CRANBERRY [Concomitant]

REACTIONS (1)
  - WEIGHT DECREASED [None]
